FAERS Safety Report 18573160 (Version 1)
Quarter: 2020Q4

REPORT INFORMATION
  Report Type: Spontaneous
  Country: IL (occurrence: IL)
  Receive Date: 20201203
  Receipt Date: 20201203
  Transmission Date: 20210114
  Serious: Yes (Hospitalization)
  Sender: FDA-Public Use
  Company Number: IL-ROCHE-2724138

PATIENT
  Age: 51 Year
  Sex: Female

DRUGS (1)
  1. ROZLYTREK [Suspect]
     Active Substance: ENTRECTINIB
     Indication: ADENOCARCINOMA
     Route: 065
     Dates: start: 202011

REACTIONS (7)
  - Arthralgia [Unknown]
  - Troponin increased [Not Recovered/Not Resolved]
  - Chest pain [Unknown]
  - Urinary tract infection [Unknown]
  - Left ventricular dysfunction [Unknown]
  - Blood pressure decreased [Recovered/Resolved]
  - Inflammation [Unknown]

NARRATIVE: CASE EVENT DATE: 20201126
